FAERS Safety Report 12952043 (Version 2)
Quarter: 2016Q4

REPORT INFORMATION
  Report Type: Spontaneous
  Country: US (occurrence: US)
  Receive Date: 20161117
  Receipt Date: 20161221
  Transmission Date: 20170207
  Serious: Yes (Other)
  Sender: FDA-Public Use
  Company Number: US-NOVOPROD-504120

PATIENT
  Age: 25 Year
  Sex: Female

DRUGS (5)
  1. NOVOLOG [Suspect]
     Active Substance: INSULIN ASPART
     Dosage: UNK
     Route: 058
     Dates: start: 201607
  2. NOVOLOG [Suspect]
     Active Substance: INSULIN ASPART
     Indication: TYPE 1 DIABETES MELLITUS
     Dosage: UNK
     Route: 058
     Dates: start: 20160725
  3. NOVOLOG [Suspect]
     Active Substance: INSULIN ASPART
     Dosage: UNSPECIFIED PUMP RATE
     Route: 058
     Dates: start: 20160727
  4. NOVOLOG [Suspect]
     Active Substance: INSULIN ASPART
     Dosage: 8 U, BOLUS DOSE
     Route: 058
     Dates: start: 20160727
  5. LEVEMIR [Suspect]
     Active Substance: INSULIN DETEMIR
     Indication: TYPE 1 DIABETES MELLITUS
     Dosage: UNK
     Route: 058
     Dates: start: 20160725

REACTIONS (3)
  - Blood glucose increased [Recovered/Resolved]
  - Malaise [Unknown]
  - Product measured potency issue [Unknown]

NARRATIVE: CASE EVENT DATE: 20160727
